FAERS Safety Report 23356776 (Version 1)
Quarter: 2024Q1

REPORT INFORMATION
  Report Type: Other
  Country: CN (occurrence: CN)
  Receive Date: 20240102
  Receipt Date: 20240102
  Transmission Date: 20240410
  Serious: Yes (Hospitalization)
  Sender: FDA-Public Use
  Company Number: CN-ASTELLAS-2023US038985

PATIENT
  Age: 56 Year
  Sex: Male

DRUGS (5)
  1. ISAVUCONAZOLE [Suspect]
     Active Substance: ISAVUCONAZOLE
     Indication: Infection
     Route: 041
     Dates: start: 20231127
  2. CYTARABINE [Suspect]
     Active Substance: CYTARABINE
     Indication: Acute leukaemia
     Route: 039
     Dates: start: 20231120, end: 20231120
  3. CYTARABINE [Suspect]
     Active Substance: CYTARABINE
     Route: 041
     Dates: start: 20231122, end: 20231126
  4. METHOTREXATE [Suspect]
     Active Substance: METHOTREXATE
     Indication: Acute leukaemia
     Route: 037
     Dates: start: 20231120, end: 20231120
  5. MITOXANTRONE HYDROCHLORIDE [Suspect]
     Active Substance: MITOXANTRONE HYDROCHLORIDE
     Indication: Acute leukaemia
     Dosage: 10 ML, ONCE DAILY (ALSO 30 ML/HRS VIA IV PUMP AND ONE HOUR LATER CHANGED TO 100 ML/HRS VIA IV PUMP)
     Route: 041
     Dates: start: 20231122, end: 20231123

REACTIONS (2)
  - Infection [Recovering/Resolving]
  - Off label use [Unknown]

NARRATIVE: CASE EVENT DATE: 20231127
